FAERS Safety Report 20796944 (Version 3)
Quarter: 2022Q2

REPORT INFORMATION
  Report Type: Report from Study
  Country: BR (occurrence: BR)
  Receive Date: 20220506
  Receipt Date: 20220517
  Transmission Date: 20220720
  Serious: Yes (Other)
  Sender: FDA-Public Use
  Company Number: BR-NOVARTISPH-NVSC2021BR272722

PATIENT
  Age: 33 Year
  Sex: Female
  Weight: 57 kg

DRUGS (9)
  1. COSENTYX [Suspect]
     Active Substance: SECUKINUMAB
     Indication: Psoriasis
     Dosage: 300 MG, UNKNOWN
     Route: 065
     Dates: start: 20211122, end: 20211220
  2. COSENTYX [Suspect]
     Active Substance: SECUKINUMAB
     Dosage: 300 MG
     Route: 065
  3. COSENTYX [Suspect]
     Active Substance: SECUKINUMAB
     Dosage: UNK
     Route: 065
  4. COSENTYX [Suspect]
     Active Substance: SECUKINUMAB
     Dosage: 300 MG
     Route: 065
     Dates: start: 202111
  5. COSENTYX [Suspect]
     Active Substance: SECUKINUMAB
     Dosage: UNK
     Route: 065
     Dates: start: 20220328
  6. COSENTYX [Suspect]
     Active Substance: SECUKINUMAB
     Dosage: 300 MG (2 PENS OF), QMO
     Route: 058
  7. ISONIAZID [Suspect]
     Active Substance: ISONIAZID
     Indication: Latent tuberculosis
     Dosage: STANDARD DOSE 5
     Route: 048
     Dates: start: 202112
  8. PREGABALIN [Concomitant]
     Active Substance: PREGABALIN
     Indication: Anxiety
     Dosage: STANDARD DOSE 5 (STARTED IN 2022), QD
     Route: 048
  9. ACETAMINOPHEN\CODEINE PHOSPHATE [Concomitant]
     Active Substance: ACETAMINOPHEN\CODEINE PHOSPHATE
     Indication: Arthralgia
     Dosage: UNK
     Route: 065

REACTIONS (41)
  - Drug-induced liver injury [Recovering/Resolving]
  - Headache [Not Recovered/Not Resolved]
  - Malaise [Not Recovered/Not Resolved]
  - Illness [Not Recovered/Not Resolved]
  - Hypoaesthesia [Recovered/Resolved with Sequelae]
  - Insomnia [Recovered/Resolved]
  - Night sweats [Recovered/Resolved]
  - Nasal congestion [Not Recovered/Not Resolved]
  - Wheezing [Recovered/Resolved]
  - Burning sensation [Recovered/Resolved]
  - Abdominal distension [Not Recovered/Not Resolved]
  - Asthenia [Not Recovered/Not Resolved]
  - Fatigue [Not Recovered/Not Resolved]
  - Polyuria [Not Recovered/Not Resolved]
  - Hyperhidrosis [Not Recovered/Not Resolved]
  - Limb injury [Not Recovered/Not Resolved]
  - Skin lesion [Not Recovered/Not Resolved]
  - Viral infection [Recovering/Resolving]
  - Pyrexia [Recovering/Resolving]
  - Dizziness [Recovering/Resolving]
  - Diarrhoea [Recovering/Resolving]
  - Oropharyngeal pain [Unknown]
  - Infection [Unknown]
  - Erythema [Unknown]
  - Pruritus [Unknown]
  - Somnolence [Unknown]
  - Dehydration [Unknown]
  - Cough [Unknown]
  - Alanine aminotransferase increased [Not Recovered/Not Resolved]
  - Aspartate aminotransferase increased [Not Recovered/Not Resolved]
  - Psoriasis [Unknown]
  - COVID-19 [Recovered/Resolved]
  - Chromaturia [Unknown]
  - Urine analysis abnormal [Unknown]
  - Decreased immune responsiveness [Recovering/Resolving]
  - Thermal burn [Recovering/Resolving]
  - Skin exfoliation [Recovering/Resolving]
  - Inflammation [Recovering/Resolving]
  - Back pain [Not Recovered/Not Resolved]
  - Neck pain [Not Recovered/Not Resolved]
  - Rhinitis [Not Recovered/Not Resolved]

NARRATIVE: CASE EVENT DATE: 20211122
